FAERS Safety Report 6323114-8 (Version None)
Quarter: 2009Q3

REPORT INFORMATION
  Report Type: 
  Country: None (occurrence: None)
  Receive Date: 20090824
  Receipt Date: 20090317
  Transmission Date: 20100115
  Serious: No
  Sender: FDA-Public Use
  Company Number: US-ABBOTT-09P-163-0563192-00

PATIENT
  Sex: Male
  Weight: 94.432 kg

DRUGS (4)
  1. NIASPAN [Suspect]
     Indication: LOW DENSITY LIPOPROTEIN DECREASED
     Route: 048
     Dates: start: 20090310
  2. TRICOR [Concomitant]
     Indication: BLOOD TRIGLYCERIDES INCREASED
     Dates: start: 20070101
  3. ASPIRIN [Concomitant]
     Indication: DRUG USE FOR UNKNOWN INDICATION
  4. INSULIN [Concomitant]
     Indication: DRUG USE FOR UNKNOWN INDICATION

REACTIONS (5)
  - BLOOD GLUCOSE INCREASED [None]
  - DYSPNOEA [None]
  - FEELING HOT [None]
  - PAIN IN EXTREMITY [None]
  - SKIN BURNING SENSATION [None]
